FAERS Safety Report 17039076 (Version 2)
Quarter: 2019Q4

REPORT INFORMATION
  Report Type: Report from Study
  Country: US (occurrence: US)
  Receive Date: 20191115
  Receipt Date: 20191213
  Transmission Date: 20200122
  Serious: No
  Sender: FDA-Public Use
  Company Number: US-SA-2019SA310720

PATIENT
  Age: 73 Year
  Sex: Male

DRUGS (1)
  1. DUPILUMAB [Suspect]
     Active Substance: DUPILUMAB
     Indication: DERMATITIS ATOPIC
     Dosage: 300 MG, QOW
     Route: 058
     Dates: start: 20190627, end: 20191021

REACTIONS (11)
  - Erythema [Unknown]
  - Skin plaque [Unknown]
  - Dry mouth [Unknown]
  - Decreased appetite [Unknown]
  - Peripheral swelling [Unknown]
  - Dry skin [Unknown]
  - Skin fissures [Unknown]
  - Pain [Unknown]
  - Scab [Unknown]
  - Blood pressure decreased [Unknown]
  - Erythrodermic psoriasis [Unknown]
